FAERS Safety Report 10518636 (Version 2)
Quarter: 2014Q4

REPORT INFORMATION
  Report Type: Report from Study
  Country: US (occurrence: US)
  Receive Date: 20141015
  Receipt Date: 20141015
  Transmission Date: 20150528
  Serious: Yes (Other)
  Sender: FDA-Public Use
  Company Number: US-LEO PHARMA-226564

PATIENT
  Age: 57 Year
  Sex: Female

DRUGS (1)
  1. PICATO [Suspect]
     Active Substance: INGENOL MEBUTATE
     Indication: ACTINIC KERATOSIS
     Dates: start: 20140305, end: 20140306

REACTIONS (6)
  - Application site inflammation [Recovering/Resolving]
  - Application site pain [Recovering/Resolving]
  - Incorrect drug administration duration [Unknown]
  - Application site vesicles [Recovering/Resolving]
  - Application site discharge [Recovering/Resolving]
  - Application site burn [Recovering/Resolving]

NARRATIVE: CASE EVENT DATE: 20140305
